FAERS Safety Report 7724248-3 (Version None)
Quarter: 2011Q3

REPORT INFORMATION
  Report Type: 
  Country: None (occurrence: None)
  Receive Date: 20110901
  Receipt Date: 20110823
  Transmission Date: 20111222
  Serious: Yes (Hospitalization)
  Sender: FDA-Public Use
  Company Number: PL-ASTRAZENECA-2011SE51166

PATIENT

DRUGS (3)
  1. EPHEDRINUM [Concomitant]
     Route: 042
     Dates: start: 20110812
  2. MARCAINE [Suspect]
     Indication: SPINAL ANAESTHESIA
     Route: 037
     Dates: start: 20110812
  3. FENTANYL [Concomitant]
     Indication: SPINAL ANAESTHESIA
     Route: 037
     Dates: start: 20110812

REACTIONS (1)
  - HYPOKINESIA [None]
